FAERS Safety Report 5672960-2 (Version None)
Quarter: 2008Q1

REPORT INFORMATION
  Report Type: 
  Country: None (occurrence: None)
  Receive Date: 20080319
  Receipt Date: 20080313
  Transmission Date: 20080703
  Serious: Yes (Death, Hospitalization)
  Sender: FDA-Public Use
  Company Number: B0507078A

PATIENT
  Age: 80 Year
  Sex: Male
  Weight: 55 kg

DRUGS (16)
  1. ARIXTRA [Suspect]
     Indication: DRUG USE FOR UNKNOWN INDICATION
     Dosage: 2.5MG PER DAY
     Route: 058
     Dates: start: 20080116, end: 20080120
  2. UNKNOWN DRUG [Concomitant]
     Dosage: 2G PER DAY
     Route: 042
     Dates: start: 20080115, end: 20080118
  3. POTACOL-R [Concomitant]
     Dosage: 1000ML PER DAY
     Route: 042
     Dates: start: 20080115, end: 20080115
  4. POTACOL-R [Concomitant]
     Dosage: 500ML PER DAY
     Route: 042
     Dates: start: 20080116, end: 20080116
  5. SOLDEM 3A [Concomitant]
     Dosage: 500ML PER DAY
     Route: 042
     Dates: start: 20080115, end: 20080115
  6. MENAMIN [Concomitant]
     Indication: ANALGESIA
     Dosage: 25MG PER DAY
     Route: 030
     Dates: start: 20080105, end: 20080121
  7. LIDOCAINE [Concomitant]
     Indication: ANALGESIA
     Dosage: 1ML PER DAY
     Route: 030
     Dates: start: 20080105, end: 20080121
  8. ADALAT [Concomitant]
     Indication: HYPERTENSION
     Dosage: 20MG PER DAY
     Route: 048
  9. KETAS [Concomitant]
     Indication: CEREBROVASCULAR DISORDER
     Dosage: 20MG PER DAY
     Route: 048
  10. CARBAMAZEPINE [Concomitant]
     Dosage: 400MG PER DAY
     Route: 048
  11. MARZULENE-S [Concomitant]
     Indication: GASTRITIS
     Dosage: 1.5G PER DAY
     Route: 048
  12. MAGNESIUM OXIDE [Concomitant]
     Indication: CONSTIPATION
     Dosage: 1.5G PER DAY
     Route: 048
  13. DIOVAN [Concomitant]
     Indication: HYPERTENSION
     Dosage: 40MG PER DAY
     Route: 048
  14. LOXONIN [Concomitant]
     Indication: ANALGESIA
     Dosage: 180MG PER DAY
     Route: 048
     Dates: start: 20080116
  15. MUCOSTA [Concomitant]
     Indication: GASTRITIS
     Dosage: 300MG PER DAY
     Route: 048
     Dates: start: 20080116
  16. DASEN [Concomitant]
     Dosage: 30MG PER DAY
     Route: 048
     Dates: start: 20080116

REACTIONS (9)
  - BLOOD CREATININE INCREASED [None]
  - HAEMATOCRIT DECREASED [None]
  - HAEMOGLOBIN DECREASED [None]
  - INJECTION SITE HAEMATOMA [None]
  - MYOCARDIAL INFARCTION [None]
  - PLATELET COUNT DECREASED [None]
  - POST PROCEDURAL HAEMORRHAGE [None]
  - RED BLOOD CELL COUNT DECREASED [None]
  - SUBARACHNOID HAEMORRHAGE [None]
